FAERS Safety Report 6742083-X (Version None)
Quarter: 2010Q2

REPORT INFORMATION
  Report Type: 
  Country: None (occurrence: None)
  Receive Date: 20100526
  Receipt Date: 20100517
  Transmission Date: 20101027
  Serious: Yes (Other)
  Sender: FDA-Public Use
  Company Number: PHHY2010IT32167

PATIENT
  Age: 78 Year
  Sex: Male

DRUGS (1)
  1. ZOMETA [Suspect]
     Indication: PROSTATE CANCER
     Dosage: 1 DF, QMO
     Route: 042
     Dates: start: 20090610, end: 20100505

REACTIONS (3)
  - ORAL DISORDER [None]
  - ORAL PAIN [None]
  - OSTEONECROSIS OF JAW [None]
